FAERS Safety Report 6997305-7 (Version None)
Quarter: 2010Q3

REPORT INFORMATION
  Report Type: 
  Country: None (occurrence: None)
  Receive Date: 20100918
  Receipt Date: 20091006
  Transmission Date: 20110219
  Serious: No
  Sender: FDA-Public Use
  Company Number: US-WYE-H11473009

PATIENT
  Sex: Female
  Weight: 112.05 kg

DRUGS (1)
  1. PRISTIQ [Suspect]
     Indication: POSTPARTUM DEPRESSION
     Route: 048
     Dates: start: 20090910, end: 20091005

REACTIONS (1)
  - RASH PRURITIC [None]
